FAERS Safety Report 10986973 (Version 1)
Quarter: 2015Q2

REPORT INFORMATION
  Report Type: Spontaneous
  Country: US (occurrence: None)
  Receive Date: 20150402
  Receipt Date: 20150402
  Transmission Date: 20150821
  Serious: Yes (Life-Threatening, Hospitalization, Other)
  Sender: FDA-Public Use
  Company Number: ADR-2015419049

PATIENT
  Age: 79 Year
  Sex: Female
  Weight: 89.36 kg

DRUGS (3)
  1. LANTUS (INSULIN) [Concomitant]
  2. LISINOPRIL TABLETS, 10 MG / INVAGEN INC. [Suspect]
     Active Substance: LISINOPRIL
     Indication: HYPERTENSION
     Route: 048
  3. UNSPECIFIED MEDICATIONS [Concomitant]
     Active Substance: UNSPECIFIED INGREDIENT

REACTIONS (5)
  - Angioedema [None]
  - Acute respiratory failure [None]
  - Hypersensitivity [None]
  - Acute kidney injury [None]
  - Choking [None]

NARRATIVE: CASE EVENT DATE: 20140513
